FAERS Safety Report 8340428-0 (Version None)
Quarter: 2012Q2

REPORT INFORMATION
  Report Type: 
  Country: None (occurrence: None)
  Receive Date: 20120507
  Receipt Date: 20120507
  Transmission Date: 20120825
  Serious: Yes (Other)
  Sender: FDA-Public Use
  Company Number: None

PATIENT
  Age: 31 Year
  Sex: Male
  Weight: 72.574 kg

DRUGS (2)
  1. PROPECIA [Suspect]
     Indication: ALOPECIA
     Dosage: |DOSAGETEXT: 1.0 MG||STRENGTH: 1MG||FREQ: ONCE PER DAY||ROUTE: ORAL|
     Route: 048
  2. PROSCAR [Suspect]
     Indication: ALOPECIA
     Dosage: |DOSAGETEXT: 1MG -TABLET WAS DIVIDED-||STRENGTH: 5MG||FREQ: ONCE PER DAY||ROUTE: ORAL|
     Route: 048

REACTIONS (4)
  - LIBIDO DECREASED [None]
  - STRESS [None]
  - PENIS DISORDER [None]
  - ERECTILE DYSFUNCTION [None]
